FAERS Safety Report 21477946 (Version 2)
Quarter: 2022Q4

REPORT INFORMATION
  Report Type: Spontaneous
  Country: IT (occurrence: IT)
  Receive Date: 20221019
  Receipt Date: 20221212
  Transmission Date: 20230113
  Serious: Yes (Hospitalization, Other)
  Sender: FDA-Public Use
  Company Number: None

PATIENT
  Age: 56 Year
  Sex: Female

DRUGS (17)
  1. FUROSEMIDE [Interacting]
     Active Substance: FUROSEMIDE
     Indication: COVID-19
     Dates: start: 2020, end: 2020
  2. HYDROXYCHLOROQUINE [Interacting]
     Active Substance: HYDROXYCHLOROQUINE
     Indication: COVID-19 pneumonia
     Dates: start: 2020, end: 2020
  3. LEVOFLOXACIN [Interacting]
     Active Substance: LEVOFLOXACIN
     Indication: COVID-19
     Route: 065
     Dates: start: 2020, end: 2020
  4. LORAZEPAM [Interacting]
     Active Substance: LORAZEPAM
     Indication: COVID-19
     Dates: start: 2020, end: 2020
  5. PIPERACILLIN AND TAZOBACTAM [Interacting]
     Active Substance: PIPERACILLIN SODIUM\TAZOBACTAM SODIUM
     Indication: COVID-19 pneumonia
     Dates: start: 2020, end: 2020
  6. PROMAZINE [Interacting]
     Active Substance: PROMAZINE
     Indication: COVID-19
     Dates: start: 2020, end: 2020
  7. HALOPERIDOL [Interacting]
     Active Substance: HALOPERIDOL
     Indication: COVID-19
     Dates: start: 2020, end: 2020
  8. IOPAMIDOL [Interacting]
     Active Substance: IOPAMIDOL
     Indication: COVID-19
  9. VANCOMYCIN [Interacting]
     Active Substance: VANCOMYCIN
     Indication: COVID-19 pneumonia
     Dates: start: 2020, end: 2020
  10. IOPROMIDE [Interacting]
     Active Substance: IOPROMIDE
     Indication: COVID-19 pneumonia
     Route: 065
     Dates: start: 2020, end: 2020
  11. FLUVOXAMINE [Interacting]
     Active Substance: FLUVOXAMINE
     Indication: COVID-19 pneumonia
     Dates: start: 2020, end: 2020
  12. ENOXAPARIN [Interacting]
     Active Substance: ENOXAPARIN
     Indication: COVID-19
     Dosage: END DATE-2020
     Dates: start: 2020, end: 2021
  13. LOPINAVIR\RITONAVIR [Interacting]
     Active Substance: LOPINAVIR\RITONAVIR
     Indication: COVID-19 pneumonia
     Route: 048
     Dates: start: 2020, end: 2020
  14. METHYLPREDNISOLONE [Interacting]
     Active Substance: METHYLPREDNISOLONE
     Indication: COVID-19
     Route: 065
     Dates: start: 2020, end: 2020
  15. HYDROXYZINE [Interacting]
     Active Substance: HYDROXYZINE HYDROCHLORIDE
     Indication: COVID-19
     Dates: start: 2020, end: 2020
  16. ASPIRIN [Interacting]
     Active Substance: ASPIRIN
     Indication: Product used for unknown indication
  17. OXYGEN [Concomitant]
     Active Substance: OXYGEN
     Dosage: INHALATION GAS

REACTIONS (5)
  - Drug reaction with eosinophilia and systemic symptoms [Recovered/Resolved]
  - Drug interaction [Unknown]
  - Drug hypersensitivity [Unknown]
  - Off label use [Unknown]
  - Rash maculo-papular [Unknown]

NARRATIVE: CASE EVENT DATE: 20200101
